FAERS Safety Report 8384251-X (Version None)
Quarter: 2012Q2

REPORT INFORMATION
  Report Type: 
  Country: None (occurrence: None)
  Receive Date: 20120524
  Receipt Date: 20120516
  Transmission Date: 20120825
  Serious: Yes (Hospitalization, Disabling, Other)
  Sender: FDA-Public Use
  Company Number: US-MERCK-1202USA03517

PATIENT
  Age: 50 Year
  Sex: Female

DRUGS (4)
  1. FOSAMAX [Suspect]
     Indication: OSTEOPOROSIS
     Route: 048
     Dates: start: 19950101, end: 20000101
  2. FOSAMAX [Suspect]
     Indication: OSTEOPENIA
     Route: 048
     Dates: start: 19950101, end: 20000101
  3. BONIVA [Suspect]
     Indication: OSTEOPENIA
     Route: 065
     Dates: start: 20000101, end: 20100601
  4. BONIVA [Suspect]
     Indication: OSTEOPOROSIS
     Route: 065
     Dates: start: 20000101, end: 20100601

REACTIONS (19)
  - FEMUR FRACTURE [None]
  - SPINAL OSTEOARTHRITIS [None]
  - VITAMIN D DEFICIENCY [None]
  - LOW TURNOVER OSTEOPATHY [None]
  - MYALGIA [None]
  - PAIN IN EXTREMITY [None]
  - FOOT FRACTURE [None]
  - EYE DISORDER [None]
  - GASTROOESOPHAGEAL REFLUX DISEASE [None]
  - ARTHRALGIA [None]
  - INTERVERTEBRAL DISC PROTRUSION [None]
  - OSTEONECROSIS [None]
  - ALOPECIA [None]
  - OSTEOARTHRITIS [None]
  - HYPOAESTHESIA [None]
  - UTERINE DISORDER [None]
  - BURSITIS [None]
  - TOOTH DISORDER [None]
  - SKIN TIGHTNESS [None]
